FAERS Safety Report 4375387-9 (Version None)
Quarter: 2004Q2

REPORT INFORMATION
  Report Type: 
  Country: None (occurrence: None)
  Receive Date: 20040528
  Receipt Date: 20040511
  Transmission Date: 20050107
  Serious: Yes (Hospitalization)
  Sender: FDA-Public Use
  Company Number: THYM-10157

PATIENT
  Age: 34 Year
  Sex: Male
  Weight: 73 kg

DRUGS (1)
  1. THYMOGLOBULIN [Suspect]
     Indication: KIDNEY TRANSPLANT REJECTION
     Dosage: 100 MG QD IV
     Route: 042
     Dates: start: 20040707, end: 20040710

REACTIONS (1)
  - HYPOTENSION [None]
